FAERS Safety Report 13158381 (Version 1)
Quarter: 2017Q1

REPORT INFORMATION
  Report Type: Report from Study
  Country: PE (occurrence: PE)
  Receive Date: 20170127
  Receipt Date: 20170127
  Transmission Date: 20170428
  Serious: Yes (Other)
  Sender: FDA-Public Use
  Company Number: PE-EMD SERONO-8133411

PATIENT
  Age: 9 Year
  Sex: Female

DRUGS (1)
  1. SAIZEN [Suspect]
     Active Substance: SOMATROPIN
     Indication: BODY HEIGHT BELOW NORMAL
     Dates: start: 20161010

REACTIONS (2)
  - Breast mass [Unknown]
  - Off label use [Unknown]

NARRATIVE: CASE EVENT DATE: 20161010
